FAERS Safety Report 16871255 (Version 3)
Quarter: 2019Q4

REPORT INFORMATION
  Report Type: Spontaneous
  Country: US (occurrence: US)
  Receive Date: 20191001
  Receipt Date: 20191105
  Transmission Date: 20200122
  Serious: No
  Sender: FDA-Public Use
  Company Number: US-JNJFOC-20190931595

PATIENT
  Sex: Female
  Weight: 95.34 kg

DRUGS (2)
  1. GABAPENTIN. [Concomitant]
     Active Substance: GABAPENTIN
     Indication: HERPES ZOSTER
     Dosage: ON AND OFF SINCE 2016
     Route: 065
  2. WOMENS ROGAINE UNSCENTED [Suspect]
     Active Substance: MINOXIDIL
     Indication: ALOPECIA
     Dosage: HALF OF THE CAP ONCE A DAY
     Route: 061
     Dates: end: 20190818

REACTIONS (3)
  - Drug ineffective [Unknown]
  - Application site pain [Recovered/Resolved]
  - Trichorrhexis [Recovering/Resolving]

NARRATIVE: CASE EVENT DATE: 2018
